FAERS Safety Report 16888076 (Version 2)
Quarter: 2019Q4

REPORT INFORMATION
  Report Type: Report from Study
  Country: None (occurrence: US)
  Receive Date: 20191006
  Receipt Date: 20191015
  Transmission Date: 20200122
  Serious: Yes (Hospitalization)
  Sender: FDA-Public Use
  Company Number: US-ABBVIE-19K-163-2948489-00

PATIENT
  Age: 64 Year
  Sex: Female

DRUGS (2)
  1. HUMIRA [Suspect]
     Active Substance: ADALIMUMAB
     Indication: PSORIATIC ARTHROPATHY
     Dosage: CITRATE FREE
     Route: 058
     Dates: start: 20190620, end: 2019
  2. HUMIRA [Suspect]
     Active Substance: ADALIMUMAB
     Route: 058
     Dates: start: 201909

REACTIONS (11)
  - Drug ineffective [Unknown]
  - Pain in extremity [Unknown]
  - Headache [Unknown]
  - Blood glucose decreased [Unknown]
  - Dyspnoea [Unknown]
  - Anxiety [Unknown]
  - Thrombosis [Recovering/Resolving]
  - Diabetes mellitus [Unknown]
  - Depression [Unknown]
  - Atrial fibrillation [Unknown]
  - Pulmonary thrombosis [Recovering/Resolving]

NARRATIVE: CASE EVENT DATE: 2019
